FAERS Safety Report 8764335 (Version 1)
Quarter: 2012Q4

REPORT INFORMATION
  Report Type: 
  Country: KR (occurrence: KR)
  Receive Date: 20120830
  Receipt Date: 20120830
  Transmission Date: 20130627
  Serious: Yes (Other)
  Sender: FDA-Public Use
  Company Number: PHHY2009KR071167

PATIENT
  Sex: Female

DRUGS (1)
  1. GLIVEC [Suspect]
     Indication: CHRONIC MYELOID LEUKAEMIA
     Dosage: 400 mg per day
     Dates: start: 20070328

REACTIONS (4)
  - Orbital cyst [Unknown]
  - Eye pain [Unknown]
  - Erythema [Unknown]
  - Hordeolum [None]
